FAERS Safety Report 9422961 (Version 2)
Quarter: 2013Q3

REPORT INFORMATION
  Report Type: Spontaneous
  Country: FR (occurrence: FR)
  Receive Date: 20130726
  Receipt Date: 20130812
  Transmission Date: 20140515
  Serious: Yes (Death, Hospitalization)
  Sender: FDA-Public Use
  Company Number: FR-ELI_LILLY_AND_COMPANY-FR201307007267

PATIENT
  Age: 78 Year
  Sex: Female

DRUGS (14)
  1. ALIMTA [Suspect]
     Indication: LYMPHANGIOSIS CARCINOMATOSA
     Dosage: UNK
     Route: 042
     Dates: start: 20130426, end: 20130426
  2. CARBOPLATIN [Suspect]
     Indication: LYMPHANGIOSIS CARCINOMATOSA
     Dosage: UNK
     Dates: start: 20130426, end: 20130426
  3. STAGID [Concomitant]
     Dosage: 700 DF, TID
  4. FUROSEMIDE [Concomitant]
     Dosage: 40 DF, QD
  5. CELECTOL [Concomitant]
     Dosage: 200 DF, QD
  6. PERINDOPRIL [Concomitant]
     Dosage: 4 DF, QD
  7. FLECAINE [Concomitant]
     Dosage: 150 DF, QD
  8. KARDEGIC [Concomitant]
     Dosage: 160 DF, QD
  9. SIMVASTATINE [Concomitant]
     Dosage: 40 DF, QD
  10. LORAZEPAM [Concomitant]
     Dosage: 2.5 DF, QD
  11. LEVOTHYROX [Concomitant]
     Dosage: 200 DF, QD
  12. VENLAFAXINE [Concomitant]
     Dosage: 75 DF, QD
  13. UN-ALFA [Concomitant]
     Dosage: 0.5 DF, BID
  14. INNOHEP [Concomitant]
     Dosage: 14000 IU, UNK

REACTIONS (15)
  - Renal failure acute [Fatal]
  - Hyperkalaemia [Fatal]
  - Metabolic acidosis [Fatal]
  - Febrile bone marrow aplasia [Recovered/Resolved]
  - Fungal infection [Not Recovered/Not Resolved]
  - Decreased appetite [Unknown]
  - Diarrhoea [Unknown]
  - Abdominal pain [Unknown]
  - Sputum discoloured [Unknown]
  - Asthenia [Unknown]
  - Dehydration [Unknown]
  - Weight decreased [Unknown]
  - Dysphagia [Unknown]
  - Cachexia [Unknown]
  - Off label use [Recovered/Resolved]
